FAERS Safety Report 8118566-7 (Version None)
Quarter: 2012Q1

REPORT INFORMATION
  Report Type: 
  Country: None (occurrence: None)
  Receive Date: 20120207
  Receipt Date: 20120124
  Transmission Date: 20120608
  Serious: Yes (Hospitalization)
  Sender: FDA-Public Use
  Company Number: GB-PFIZER INC-2012022583

PATIENT
  Age: 65 Year
  Sex: Male
  Weight: 120 kg

DRUGS (12)
  1. ASPIRIN [Concomitant]
     Indication: PERCUTANEOUS CORONARY INTERVENTION
     Route: 048
  2. LIPITOR [Concomitant]
     Indication: PERCUTANEOUS CORONARY INTERVENTION
     Route: 048
  3. DIAMICRON [Concomitant]
     Indication: TYPE 2 DIABETES MELLITUS
     Route: 065
     Dates: start: 20061128
  4. METFORMIN HCL [Concomitant]
     Indication: TYPE 2 DIABETES MELLITUS
     Route: 065
     Dates: start: 20060525, end: 20120116
  5. BLINDED THERAPY [Suspect]
     Indication: TYPE 2 DIABETES MELLITUS
     Dosage: UNK
     Route: 048
     Dates: end: 20120109
  6. BISOPROLOL FUMARATE [Concomitant]
     Indication: PERCUTANEOUS CORONARY INTERVENTION
     Route: 048
  7. ACETAMINOPHEN AND CODEINE PHOSPHATE [Suspect]
  8. AMLODIPINE [Concomitant]
     Indication: HYPERTENSION
     Route: 048
     Dates: end: 20120116
  9. METFORMIN HCL [Concomitant]
     Route: 065
     Dates: start: 20120121
  10. ZESTORETIC [Concomitant]
     Route: 048
     Dates: start: 20120122
  11. IBUPROFEN [Suspect]
     Indication: ARTHRALGIA
     Route: 048
     Dates: start: 20111220, end: 20111230
  12. ZESTORETIC [Concomitant]
     Indication: PERCUTANEOUS CORONARY INTERVENTION
     Route: 048
     Dates: end: 20120116

REACTIONS (3)
  - RENAL IMPAIRMENT [None]
  - RENAL FAILURE ACUTE [None]
  - DEHYDRATION [None]
